FAERS Safety Report 4674143-1 (Version None)
Quarter: 2005Q2

REPORT INFORMATION
  Report Type: 
  Country: None (occurrence: None)
  Receive Date: 20050526
  Receipt Date: 20050517
  Transmission Date: 20051028
  Serious: Yes (Other)
  Sender: FDA-Public Use
  Company Number: US-JNJFOC-20050200621

PATIENT
  Sex: Female
  Weight: 63.5 kg

DRUGS (14)
  1. REMICADE [Suspect]
     Route: 042
  2. REMICADE [Suspect]
     Indication: RHEUMATOID ARTHRITIS
     Route: 042
  3. METHOTREXATE [Concomitant]
  4. LOPRESSOR [Concomitant]
  5. MEDROL [Concomitant]
  6. ULTRACET [Concomitant]
  7. ACIPHEX [Concomitant]
  8. PROTONIX [Concomitant]
  9. CARAFATE [Concomitant]
  10. ZANTAC [Concomitant]
  11. FIORINOL [Concomitant]
  12. FIORINOL [Concomitant]
  13. FIORINOL [Concomitant]
  14. MIACALCIN [Concomitant]

REACTIONS (7)
  - ARTHRALGIA [None]
  - GASTRIC ULCER [None]
  - GASTROENTERITIS [None]
  - HYPERSENSITIVITY [None]
  - MUSCLE SPASMS [None]
  - NASOPHARYNGITIS [None]
  - REFLUX OESOPHAGITIS [None]
